FAERS Safety Report 7300790-4 (Version None)
Quarter: 2011Q1

REPORT INFORMATION
  Report Type: 
  Country: None (occurrence: None)
  Receive Date: 20110218
  Receipt Date: 20110210
  Transmission Date: 20110831
  Serious: Yes (Hospitalization)
  Sender: FDA-Public Use
  Company Number: JP-ASTELLAS-2011JP001071

PATIENT
  Age: 89 Year
  Sex: Male

DRUGS (8)
  1. PREDONINE [Suspect]
     Dosage: 5 MG, UNKNOWN/D
     Route: 048
     Dates: start: 20100206, end: 20110205
  2. SIGMART [Concomitant]
     Dosage: UNK
     Route: 048
  3. PROGRAF [Suspect]
     Indication: RHEUMATOID ARTHRITIS
     Dosage: 1 MG, UNKNOWN/D
     Route: 048
     Dates: start: 20100405, end: 20110205
  4. GASTER [Suspect]
     Dosage: UNK
     Route: 048
  5. VOLTAREN [Concomitant]
     Dosage: UNK
     Route: 048
  6. PERDIPINE [Suspect]
     Indication: HYPERTENSION
     Dosage: UNK
     Route: 048
  7. AVAPRO [Concomitant]
     Dosage: UNK
     Route: 048
  8. METHOTREXATE [Suspect]
     Dosage: 7.5 MG, UNKNOWN/D
     Route: 048
     Dates: start: 20100206, end: 20110205

REACTIONS (1)
  - INTERSTITIAL LUNG DISEASE [None]
